FAERS Safety Report 11040288 (Version 2)
Quarter: 2015Q2

REPORT INFORMATION
  Report Type: Spontaneous
  Country: US (occurrence: US)
  Receive Date: 20150416
  Receipt Date: 20150525
  Transmission Date: 20150821
  Serious: No
  Sender: FDA-Public Use
  Company Number: US-JNJFOC-20131214030

PATIENT
  Age: 49 Year
  Sex: Male

DRUGS (11)
  1. XARELTO [Suspect]
     Active Substance: RIVAROXABAN
     Indication: DEEP VEIN THROMBOSIS
     Route: 048
  2. MIDODRINE [Concomitant]
     Active Substance: MIDODRINE
  3. SONATA [Concomitant]
     Active Substance: ZALEPLON
  4. XARELTO [Suspect]
     Active Substance: RIVAROXABAN
     Indication: DEEP VEIN THROMBOSIS
     Route: 048
     Dates: start: 20131205
  5. PROAMATINE [Concomitant]
     Active Substance: MIDODRINE HYDROCHLORIDE
  6. SENNA [Concomitant]
     Active Substance: SENNA LEAF\SENNOSIDES\SENNOSIDES A AND B
  7. PREGABALIN. [Concomitant]
     Active Substance: PREGABALIN
  8. DITROPAN XL [Concomitant]
     Active Substance: OXYBUTYNIN CHLORIDE
  9. ACETAMINOPHEN. [Concomitant]
     Active Substance: ACETAMINOPHEN
  10. BISACODYL. [Concomitant]
     Active Substance: BISACODYL
  11. GUAIFENESIN. [Concomitant]
     Active Substance: GUAIFENESIN

REACTIONS (1)
  - Rash [Unknown]
